FAERS Safety Report 15323981 (Version 1)
Quarter: 2018Q3

REPORT INFORMATION
  Report Type: Spontaneous
  Country: BR (occurrence: BR)
  Receive Date: 20180828
  Receipt Date: 20180828
  Transmission Date: 20181010
  Serious: Yes (Life-Threatening, Disabling, Other)
  Sender: FDA-Public Use
  Company Number: BR-TEVA-2018-BR-948572

PATIENT
  Age: 91 Year
  Sex: Male
  Weight: 79 kg

DRUGS (6)
  1. CARVEDILOL 6.25 MG [Concomitant]
     Active Substance: CARVEDILOL
     Indication: CARDIAC DISORDER
     Dosage: 12.5 MILLIGRAM DAILY; STARTED 5 YEARS AGO
     Route: 065
  2. AZILECT [Suspect]
     Active Substance: RASAGILINE MESYLATE
     Indication: PARKINSON^S DISEASE
     Dosage: 1 MILLIGRAM DAILY;
     Route: 048
     Dates: start: 20180629, end: 20180706
  3. SYNTHROID [Concomitant]
     Active Substance: LEVOTHYROXINE SODIUM
     Indication: HYPOTHYROIDISM
     Dosage: 50 MICROGRAM DAILY; STARTED 2 YEARS AGO
     Route: 065
  4. GLIFAGE 500MG [Concomitant]
     Indication: DIABETES MELLITUS
     Dosage: 1000 MILLIGRAM DAILY; STARTED 4 YEARS AGO
     Route: 065
  5. MONURIL [Concomitant]
     Active Substance: FOSFOMYCIN SODIUM
     Indication: URINARY TRACT INFECTION
     Dosage: SPORADIC USE
     Route: 065
  6. MONOCORDIL 20MG [Concomitant]
     Indication: CARDIAC DISORDER
     Dosage: 40 MILLIGRAM DAILY; STARTED 5 YEARS AGO
     Route: 065

REACTIONS (13)
  - Walking disability [Recovered/Resolved]
  - Decreased appetite [Recovered/Resolved]
  - Gait disturbance [Recovered/Resolved]
  - Tremor [Recovered/Resolved]
  - Drug ineffective [Unknown]
  - Bedridden [Recovered/Resolved]
  - Asthenia [Recovered/Resolved]
  - Hypersomnia [Recovered/Resolved]
  - Dementia [Recovered/Resolved]
  - Apparent death [Recovered/Resolved]
  - Anal incontinence [Recovered/Resolved]
  - Unresponsive to stimuli [Recovered/Resolved]
  - Drooling [Recovered/Resolved]

NARRATIVE: CASE EVENT DATE: 2018
